FAERS Safety Report 10598746 (Version 2)
Quarter: 2014Q4

REPORT INFORMATION
  Report Type: Spontaneous
  Country: US (occurrence: US)
  Receive Date: 20141121
  Receipt Date: 20141121
  Transmission Date: 20150529
  Serious: No
  Sender: FDA-Public Use
  Company Number: US-PFIZER INC-2014317140

PATIENT
  Age: 36 Year
  Sex: Male
  Weight: 136.5 kg

DRUGS (3)
  1. LYRICA [Suspect]
     Active Substance: PREGABALIN
     Indication: NEURALGIA
     Dosage: 50 MG, 2X/DAY (ONE IN MORNING AND ONE AT NIGHT)
     Dates: start: 201410
  2. LYRICA [Suspect]
     Active Substance: PREGABALIN
     Indication: INFLAMMATION
  3. LYRICA [Suspect]
     Active Substance: PREGABALIN
     Indication: ARTHRITIS

REACTIONS (1)
  - Fatigue [Unknown]
